FAERS Safety Report 9707830 (Version 2)
Quarter: 2013Q4

REPORT INFORMATION
  Report Type: Report from Study
  Country: DE (occurrence: DE)
  Receive Date: 20131125
  Receipt Date: 20131125
  Transmission Date: 20140711
  Serious: Yes (Death)
  Sender: FDA-Public Use
  Company Number: DE-ABBVIE-13P-062-1038226-00

PATIENT
  Age: 61 Year
  Sex: Male

DRUGS (5)
  1. TRENATONE [Suspect]
     Indication: PROSTATE CANCER
     Route: 058
     Dates: start: 20111019
  2. TRENATONE [Suspect]
     Route: 058
     Dates: start: 20131022
  3. ZOMETA [Concomitant]
     Indication: PRODUCT USED FOR UNKNOWN INDICATION
     Dates: start: 20120426
  4. BICALUTIN [Concomitant]
     Indication: PRODUCT USED FOR UNKNOWN INDICATION
     Dates: start: 20130426
  5. ALL OTHER THERAPEUTIC PRODUCTS [Concomitant]
     Indication: PRODUCT USED FOR UNKNOWN INDICATION
     Dates: start: 20131025

REACTIONS (6)
  - General physical health deterioration [Fatal]
  - Blood alkaline phosphatase increased [Unknown]
  - Paraplegia [Unknown]
  - Osteoporosis [Unknown]
  - Hypertension [Unknown]
  - Gamma-glutamyltransferase increased [Unknown]
